FAERS Safety Report 11504503 (Version 1)
Quarter: 2015Q3

REPORT INFORMATION
  Report Type: Spontaneous
  Country: US (occurrence: US)
  Receive Date: 20150915
  Receipt Date: 20150915
  Transmission Date: 20151125
  Serious: No
  Sender: FDA-Public Use
  Company Number: US-ROCHE-798533

PATIENT
  Sex: Female

DRUGS (5)
  1. TELAPREVIR [Concomitant]
     Active Substance: TELAPREVIR
     Indication: CHRONIC HEPATITIS C
     Route: 065
  2. PEGASYS [Suspect]
     Active Substance: PEGINTERFERON ALFA-2A
     Route: 058
  3. PEGASYS [Suspect]
     Active Substance: PEGINTERFERON ALFA-2A
     Indication: CHRONIC HEPATITIS C
     Route: 058
  4. COPEGUS [Suspect]
     Active Substance: RIBAVIRIN
     Indication: CHRONIC HEPATITIS C
     Dosage: IN DIVIDED DOSES.
     Route: 048
  5. COPEGUS [Suspect]
     Active Substance: RIBAVIRIN
     Dosage: 1200 MG/DAY (DIVIDED DOSES)
     Route: 048

REACTIONS (8)
  - Abdominal pain upper [Unknown]
  - Feeling jittery [Unknown]
  - Chills [Unknown]
  - Confusional state [Unknown]
  - Overdose [Unknown]
  - Nausea [Unknown]
  - Nervousness [Unknown]
  - Dyspepsia [Unknown]
